FAERS Safety Report 16373448 (Version 1)
Quarter: 2019Q2

REPORT INFORMATION
  Report Type: Spontaneous
  Country: AU (occurrence: AU)
  Receive Date: 20190530
  Receipt Date: 20190530
  Transmission Date: 20190711
  Serious: Yes (Other)
  Sender: FDA-Public Use
  Company Number: AU-PFIZER INC-2019225877

PATIENT
  Age: 21 Year
  Sex: Male

DRUGS (3)
  1. SODIUM VALPROATE [Concomitant]
     Active Substance: VALPROATE SODIUM
     Dosage: 1000 MG, UNK
  2. PRISTIQ EXTENDED-RELEASE [Suspect]
     Active Substance: DESVENLAFAXINE SUCCINATE
     Indication: BIPOLAR DISORDER
     Dosage: 200 MG, DAILY
  3. LITHIUM CARBONATE. [Concomitant]
     Active Substance: LITHIUM CARBONATE
     Dosage: 900 MG, UNK

REACTIONS (19)
  - Drug level increased [Unknown]
  - Yellow skin [Unknown]
  - Hallucination [Unknown]
  - Fall [Unknown]
  - Temporomandibular joint syndrome [Unknown]
  - Off label use [Unknown]
  - Head injury [Unknown]
  - Bruxism [Unknown]
  - Emotional distress [Unknown]
  - Tooth fracture [Unknown]
  - Anger [Unknown]
  - Weight decreased [Unknown]
  - Contraindicated product administered [Unknown]
  - Product use in unapproved indication [Unknown]
  - Intentional self-injury [Unknown]
  - Dizziness [Unknown]
  - Suicidal behaviour [Unknown]
  - Insomnia [Unknown]
  - Pain [Unknown]
